FAERS Safety Report 5798931-3 (Version None)
Quarter: 2008Q3

REPORT INFORMATION
  Report Type: 
  Country: None (occurrence: None)
  Receive Date: 20080701
  Receipt Date: 20080618
  Transmission Date: 20090109
  Serious: Yes (Other)
  Sender: FDA-Public Use
  Company Number: 234299J08USA

PATIENT
  Age: 55 Year
  Sex: Female
  Weight: 56.6996 kg

DRUGS (3)
  1. REBIF [Suspect]
     Indication: MULTIPLE SCLEROSIS
     Dosage: 22 MCG, 3 IN 1 WEEKS, SUBCUTANEOUS
     Route: 058
     Dates: start: 20061222
  2. BACLOFEN [Concomitant]
  3. PROVIGIL [Concomitant]

REACTIONS (4)
  - CATARACT [None]
  - MYODESOPSIA [None]
  - RETINAL DETACHMENT [None]
  - VISION BLURRED [None]
